FAERS Safety Report 8861320 (Version 1)
Quarter: 2012Q4

REPORT INFORMATION
  Report Type: 
  Country: US (occurrence: US)
  Receive Date: 20121026
  Receipt Date: 20121026
  Transmission Date: 20130627
  Serious: No
  Sender: FDA-Public Use
  Company Number: US-PFIZER INC-2012265862

PATIENT

DRUGS (2)
  1. TIKOSYN [Suspect]
     Dosage: UNK
  2. COUMADINE [Interacting]
     Dosage: UNK

REACTIONS (2)
  - Ligament injury [Unknown]
  - Drug interaction [Unknown]
